FAERS Safety Report 16943748 (Version 1)
Quarter: 2019Q4

REPORT INFORMATION
  Report Type: Spontaneous
  Country: CA (occurrence: CA)
  Receive Date: 20191022
  Receipt Date: 20191022
  Transmission Date: 20200122
  Serious: Yes (Other)
  Sender: FDA-Public Use
  Company Number: CA-TEVA-2019-CA-1124010

PATIENT

DRUGS (2)
  1. TEVA-LEVOFLOXACIN [Suspect]
     Active Substance: LEVOFLOXACIN
     Indication: URINARY TRACT INFECTION
     Route: 065
  2. NEXIUM [Concomitant]
     Active Substance: ESOMEPRAZOLE MAGNESIUM
     Indication: ABDOMINAL DISCOMFORT

REACTIONS (6)
  - Near death experience [Unknown]
  - Insomnia [Unknown]
  - Paraesthesia [Unknown]
  - Feeling abnormal [Unknown]
  - Tendon disorder [Unknown]
  - Asthenia [Unknown]
